APPROVED DRUG PRODUCT: CARBAMAZEPINE
Active Ingredient: CARBAMAZEPINE
Strength: 400MG
Dosage Form/Route: TABLET, EXTENDED RELEASE;ORAL
Application: A216594 | Product #003 | TE Code: AB
Applicant: UMEDICA LABORATORIES PRIVATE LTD
Approved: Aug 18, 2022 | RLD: No | RS: No | Type: RX